FAERS Safety Report 15451801 (Version 1)
Quarter: 2018Q4

REPORT INFORMATION
  Report Type: Spontaneous
  Country: CA (occurrence: CA)
  Receive Date: 20181001
  Receipt Date: 20181001
  Transmission Date: 20190204
  Serious: Yes (Other)
  Sender: FDA-Public Use
  Company Number: CA-PFIZER INC-2018394002

PATIENT
  Age: 33 Year
  Sex: Female

DRUGS (2)
  1. HYCODAN [HYDROCODONE BITARTRATE] [Suspect]
     Active Substance: HYDROCODONE BITARTRATE
     Dosage: 5 ML, 2X/DAY
     Route: 048
  2. ERYTHROMYCIN. [Suspect]
     Active Substance: ERYTHROMYCIN
     Dosage: 250 MG, 4X/DAY
     Route: 048

REACTIONS (2)
  - Mastitis [Recovered/Resolved]
  - Galactorrhoea [Recovered/Resolved]
